FAERS Safety Report 5103494-1 (Version None)
Quarter: 2006Q3

REPORT INFORMATION
  Report Type: 
  Country: None (occurrence: None)
  Receive Date: 20060731
  Receipt Date: 20060130
  Transmission Date: 20061208
  Serious: Yes (Other)
  Sender: FDA-Public Use
  Company Number: US-JNJFOC-20051201887

PATIENT
  Age: 58 Year
  Sex: Male

DRUGS (4)
  1. RISPERDAL [Suspect]
     Indication: SCHIZOPHRENIA, PARANOID TYPE
     Dosage: 2 MG, 2 IN 1 DAY, ORAL
     Route: 048
  2. RISPERDAL CONSTA [Suspect]
     Indication: SCHIZOPHRENIA, PARANOID TYPE
     Dosage: 25 MG, 1 IN 2 WEEK, INTRAMUSCULAR
     Route: 030
     Dates: start: 20051006
  3. COGENTIN [Concomitant]
  4. VITAMIN E [Concomitant]

REACTIONS (4)
  - AGITATION [None]
  - HYPONATRAEMIA [None]
  - SOMNOLENCE [None]
  - TARDIVE DYSKINESIA [None]
